FAERS Safety Report 14682416 (Version 1)
Quarter: 2018Q1

REPORT INFORMATION
  Report Type: Report from Study
  Country: None (occurrence: US)
  Receive Date: 20180326
  Receipt Date: 20180326
  Transmission Date: 20180509
  Serious: Yes (Hospitalization, Other)
  Sender: FDA-Public Use
  Company Number: US-ABBVIE-18P-163-2300747-00

PATIENT
  Sex: Female

DRUGS (2)
  1. SYNAGIS [Suspect]
     Active Substance: PALIVIZUMAB
     Indication: NEONATAL RESPIRATORY FAILURE
     Route: 030
     Dates: start: 20171207
  2. SYNAGIS [Suspect]
     Active Substance: PALIVIZUMAB
     Indication: PREMATURE BABY

REACTIONS (4)
  - Off label use [Unknown]
  - Respiratory syncytial virus infection [Unknown]
  - Respiratory distress [Unknown]
  - Product use in unapproved indication [Unknown]
